FAERS Safety Report 5232753-7 (Version None)
Quarter: 2007Q1

REPORT INFORMATION
  Report Type: 
  Country: None (occurrence: None)
  Receive Date: 20070206
  Receipt Date: 20070206
  Transmission Date: 20070707
  Serious: Yes (Other)
  Sender: FDA-Public Use
  Company Number: None

PATIENT
  Sex: Male
  Weight: 108.8633 kg

DRUGS (2)
  1. CYMBALTA [Suspect]
     Indication: BACK PAIN
     Dosage: 1  DAY
     Dates: start: 20050401, end: 20061001
  2. CYMBALTA [Suspect]
     Indication: DEPRESSION
     Dosage: 1  DAY
     Dates: start: 20050401, end: 20061001

REACTIONS (3)
  - CARDIOMEGALY [None]
  - DRUG WITHDRAWAL SYNDROME [None]
  - HYPERTENSION [None]
